FAERS Safety Report 6218939-3 (Version None)
Quarter: 2009Q2

REPORT INFORMATION
  Report Type: 
  Country: None (occurrence: None)
  Receive Date: 20090608
  Receipt Date: 20090602
  Transmission Date: 20091009
  Serious: Yes (Hospitalization, Other)
  Sender: FDA-Public Use
  Company Number: US-AMGEN-US348576

PATIENT
  Sex: Male
  Weight: 100.7 kg

DRUGS (11)
  1. NPLATE [Suspect]
     Indication: IDIOPATHIC THROMBOCYTOPENIC PURPURA
     Route: 058
     Dates: start: 20081112, end: 20090424
  2. PREDNISONE [Concomitant]
     Dates: start: 20081001
  3. LASIX [Concomitant]
     Dates: start: 20090301
  4. SPIRONOLACTONE [Concomitant]
     Dates: start: 20090301
  5. PANCREASE [Concomitant]
     Dates: start: 20090401
  6. MAGNESIUM OXIDE [Concomitant]
     Dates: start: 20081215
  7. TACROLIMUS [Concomitant]
     Dates: start: 20000101
  8. NORVASC [Concomitant]
     Dates: start: 20000101
  9. PRILOSEC [Concomitant]
     Dates: start: 20070101
  10. CENTRUM [Concomitant]
     Dates: start: 20070101
  11. INSULIN [Concomitant]
     Dates: start: 20080101

REACTIONS (4)
  - HEPATIC ENZYME INCREASED [None]
  - PORTAL VEIN THROMBOSIS [None]
  - PULMONARY EMBOLISM [None]
  - THROMBOCYTHAEMIA [None]
